FAERS Safety Report 13285280 (Version 1)
Quarter: 2017Q1

REPORT INFORMATION
  Report Type: Spontaneous
  Country: US (occurrence: US)
  Receive Date: 20170301
  Receipt Date: 20170301
  Transmission Date: 20170428
  Serious: Yes (Disabling, Other)
  Sender: FDA-Public Use
  Company Number: None

PATIENT
  Age: 10 Year
  Sex: Female
  Weight: 34.2 kg

DRUGS (1)
  1. MIRALAX [Suspect]
     Active Substance: POLYETHYLENE GLYCOL 3350
     Indication: GASTROINTESTINAL DISORDER
     Dosage: 1 OUNCE TWICE A DAY ORAL?
     Route: 048
     Dates: start: 20150202, end: 20161223

REACTIONS (6)
  - Mood swings [None]
  - Staring [None]
  - Tremor [None]
  - Headache [None]
  - Crying [None]
  - Depression [None]

NARRATIVE: CASE EVENT DATE: 20150316
